FAERS Safety Report 25558222 (Version 1)
Quarter: 2025Q3

REPORT INFORMATION
  Report Type: Spontaneous
  Country: EU (occurrence: EU)
  Receive Date: 20250715
  Receipt Date: 20250715
  Transmission Date: 20251021
  Serious: Yes (Hospitalization, Other)
  Sender: TAKEDA
  Company Number: None

PATIENT
  Age: 8 Year
  Sex: Male
  Weight: 33.8 kg

DRUGS (2)
  1. VONICOG ALFA [Suspect]
     Active Substance: VONICOG ALFA
     Indication: Von Willebrand^s disease
     Dates: start: 20250625, end: 20250625
  2. VON WILLEBRAND FACTOR HUMAN [Concomitant]
     Active Substance: VON WILLEBRAND FACTOR HUMAN
     Indication: Von Willebrand^s disease
     Dates: start: 20250625, end: 20250625

REACTIONS (2)
  - Ischaemic stroke [Not Recovered/Not Resolved]
  - Product availability issue [Not Recovered/Not Resolved]

NARRATIVE: CASE EVENT DATE: 20250701
